FAERS Safety Report 4427291-5 (Version None)
Quarter: 2004Q3

REPORT INFORMATION
  Report Type: 
  Country: None (occurrence: None)
  Receive Date: 20040813
  Receipt Date: 20040813
  Transmission Date: 20050211
  Serious: Yes (Hospitalization)
  Sender: FDA-Public Use
  Company Number: None

PATIENT
  Age: 78 Year
  Sex: Female

DRUGS (1)
  1. DIGOXIN [Suspect]
     Indication: ATRIAL FIBRILLATION
     Dosage: 0.25 MG DAILY ORAL
     Route: 048

REACTIONS (5)
  - ANOREXIA [None]
  - ATRIOVENTRICULAR BLOCK [None]
  - DEPRESSION [None]
  - GENERAL PHYSICAL HEALTH DETERIORATION [None]
  - WEIGHT DECREASED [None]
